FAERS Safety Report 18021185 (Version 2)
Quarter: 2020Q3

REPORT INFORMATION
  Report Type: Report from Study
  Country: US (occurrence: US)
  Receive Date: 20200714
  Receipt Date: 20200717
  Transmission Date: 20201103
  Serious: Yes (Other)
  Sender: FDA-Public Use
  Company Number: US-PFIZER INC-2020269192

PATIENT
  Age: 21 Year
  Sex: Female
  Weight: 61 kg

DRUGS (3)
  1. BUPIVACAINE. [Concomitant]
     Active Substance: BUPIVACAINE
     Indication: ANALGESIC THERAPY
     Dosage: 0.5 % BUPIVACAINE 8 ML
  2. DURAMORPH [Suspect]
     Active Substance: MORPHINE SULFATE
     Indication: ANALGESIC THERAPY
     Dosage: 1 MG/ML
     Route: 037
  3. DEXTROSE. [Concomitant]
     Active Substance: DEXTROSE
     Dosage: 1 ML
     Route: 037

REACTIONS (3)
  - Apnoea [Recovering/Resolving]
  - Somnolence [Recovering/Resolving]
  - Oxygen saturation decreased [Recovering/Resolving]
